FAERS Safety Report 5373487-8 (Version None)
Quarter: 2007Q2

REPORT INFORMATION
  Report Type: 
  Country: None (occurrence: None)
  Receive Date: 20070628
  Receipt Date: 20070619
  Transmission Date: 20071010
  Serious: Yes (Hospitalization)
  Sender: FDA-Public Use
  Company Number: US-AMGEN-KDL231239

PATIENT
  Sex: Female
  Weight: 72.6 kg

DRUGS (2)
  1. PROCRIT [Suspect]
     Indication: HEPATITIS C
     Route: 065
     Dates: start: 20070401
  2. PEG-INTRON [Concomitant]

REACTIONS (3)
  - BLOOD COUNT ABNORMAL [None]
  - HAEMOGLOBIN DECREASED [None]
  - HOSPITALISATION [None]
